FAERS Safety Report 6224975-3 (Version None)
Quarter: 2009Q2

REPORT INFORMATION
  Report Type: 
  Country: None (occurrence: None)
  Receive Date: 20090612
  Receipt Date: 20090401
  Transmission Date: 20091009
  Serious: No
  Sender: FDA-Public Use
  Company Number: US-ABBOTT-09P-163-0566342-00

PATIENT
  Sex: Female
  Weight: 89.438 kg

DRUGS (4)
  1. HUMIRA [Suspect]
     Indication: PSORIASIS
     Route: 058
     Dates: start: 20080804, end: 20090101
  2. HUMIRA [Suspect]
     Route: 058
     Dates: start: 20090101, end: 20090302
  3. CYCLOSPORINE [Concomitant]
     Indication: PSORIASIS
     Dates: start: 20090101
  4. LEVOTHYROXINE SODIUM [Concomitant]
     Indication: HYPOTHYROIDISM

REACTIONS (6)
  - ARTHRALGIA [None]
  - ARTHRITIS [None]
  - DRUG INEFFECTIVE [None]
  - MUSCULAR WEAKNESS [None]
  - PRURITUS [None]
  - SKIN BURNING SENSATION [None]
